FAERS Safety Report 7245966-X (Version None)
Quarter: 2011Q1

REPORT INFORMATION
  Report Type: 
  Country: None (occurrence: None)
  Receive Date: 20110126
  Receipt Date: 20101216
  Transmission Date: 20110831
  Serious: Yes (Hospitalization, Other)
  Sender: FDA-Public Use
  Company Number: US-BAYER-201037583NA

PATIENT
  Sex: Female
  Weight: 95.692 kg

DRUGS (27)
  1. YAZ [Suspect]
     Indication: POLYCYSTIC OVARIES
  2. NEURONTIN [Concomitant]
     Indication: BIPOLAR II DISORDER
  3. CITALOPRAM [Concomitant]
     Indication: DEPRESSION
  4. RITALIN [Concomitant]
     Indication: ATTENTION DEFICIT/HYPERACTIVITY DISORDER
     Dosage: 30 MG, UNK
  5. YASMIN [Suspect]
     Indication: POLYCYSTIC OVARIES
  6. OCELLA [Suspect]
     Indication: ACNE
  7. LEXAPRO [Concomitant]
     Indication: BIPOLAR DISORDER
     Dosage: DAILY DOSE 30 MG
  8. RISPERDAL [Concomitant]
     Indication: BIPOLAR I DISORDER
     Dosage: 1 MG, UNK
  9. PREVACID [Concomitant]
     Indication: GASTROOESOPHAGEAL REFLUX DISEASE
     Dosage: DAILY DOSE 30 MG
  10. FOLIC ACID [Concomitant]
  11. VENTOLIN [Concomitant]
  12. ADVAIR [Concomitant]
     Dosage: UNK
     Dates: start: 20050101, end: 20060101
  13. ALBUTEROL [Concomitant]
     Indication: ASTHMA
     Dosage: UNK
     Dates: start: 20050101, end: 20060101
  14. CENTRALLY ACTING SYMPATHOMIMETICS [Concomitant]
     Indication: ATTENTION DEFICIT/HYPERACTIVITY DISORDER
  15. WELLBUTRIN XL [Concomitant]
     Indication: DEPRESSION
  16. DEPAKOTE [Concomitant]
     Indication: BIPOLAR II DISORDER
  17. SINGULAIR [Concomitant]
     Indication: ASTHMA
     Dosage: UNK
     Dates: start: 20050101, end: 20060101
  18. YASMIN [Suspect]
     Indication: ACNE
     Dosage: UNK
     Dates: start: 20020910, end: 20060816
  19. YAZ [Suspect]
     Indication: ACNE
     Dosage: UNK
  20. IBUPROFEN [Concomitant]
     Dosage: UNK UNK, PRN
  21. VICOPROFEN [Concomitant]
     Dosage: UNK UNK, PRN
  22. UNCODEABLE ^UNCLASSIFIABLE^ [Concomitant]
     Indication: BLOOD CHOLESTEROL ABNORMAL
  23. DESYREL [Concomitant]
  24. DILANTIN [Concomitant]
  25. INDERAL [Concomitant]
     Indication: UNEVALUABLE EVENT
  26. TRAZODONE [Concomitant]
     Indication: INSOMNIA
     Dosage: 100 MG, UNK
  27. XANAX [Concomitant]
     Indication: ANXIETY

REACTIONS (3)
  - DEEP VEIN THROMBOSIS [None]
  - PAIN IN EXTREMITY [None]
  - CHOLELITHIASIS [None]
